FAERS Safety Report 9500396 (Version 3)
Quarter: 2013Q3

REPORT INFORMATION
  Report Type: Spontaneous
  Country: US (occurrence: US)
  Receive Date: 20130905
  Receipt Date: 20130912
  Transmission Date: 20140515
  Serious: Yes (Death)
  Sender: FDA-Public Use
  Company Number: US-ROCHE-1255631

PATIENT
  Age: 65 Year
  Sex: Male

DRUGS (1)
  1. ZELBORAF [Suspect]
     Indication: MALIGNANT MELANOMA
     Dosage: 240 MG TABS X 4 TABS TWICE A DAY
     Route: 048
     Dates: start: 20130623, end: 20130812

REACTIONS (6)
  - Sepsis [Fatal]
  - Erythema [Unknown]
  - Blister [Unknown]
  - Pyrexia [Unknown]
  - Nasopharyngitis [Unknown]
  - Tremor [Unknown]
